FAERS Safety Report 22355749 (Version 5)
Quarter: 2024Q2

REPORT INFORMATION
  Report Type: Report from Study
  Country: US (occurrence: US)
  Receive Date: 20230523
  Receipt Date: 20240411
  Transmission Date: 20240716
  Serious: Yes (Hospitalization)
  Sender: FDA-Public Use
  Company Number: US-ARGENX-2023-ARGX-US001556

PATIENT

DRUGS (1)
  1. VYVGART [Suspect]
     Active Substance: EFGARTIGIMOD ALFA-FCAB
     Indication: Myasthenia gravis
     Dosage: UNK
     Route: 042
     Dates: start: 20230112

REACTIONS (9)
  - Myasthenia gravis [Recovered/Resolved]
  - Hospitalisation [Recovered/Resolved]
  - Myasthenia gravis [Unknown]
  - Lung disorder [Unknown]
  - Viral infection [Unknown]
  - Gastrostomy tube removal [Recovered/Resolved]
  - Inappropriate schedule of product administration [Unknown]
  - Inappropriate schedule of product administration [Unknown]
  - Gastrostomy [Unknown]
